FAERS Safety Report 23848853 (Version 5)
Quarter: 2024Q3

REPORT INFORMATION
  Report Type: Spontaneous
  Country: CA (occurrence: CA)
  Receive Date: 20240513
  Receipt Date: 20240705
  Transmission Date: 20241017
  Serious: Yes (Other)
  Sender: OTSUKA
  Company Number: CA-OTSUKA-2024_007101

PATIENT
  Sex: Male

DRUGS (5)
  1. ABILIFY [Suspect]
     Active Substance: ARIPIPRAZOLE
     Indication: Blood prolactin increased
     Dosage: 2 MG, QD
     Route: 065
     Dates: start: 2012
  2. ABILIFY MAINTENA [Suspect]
     Active Substance: ARIPIPRAZOLE
     Indication: Blood prolactin increased
     Dosage: 200 MG
     Route: 065
     Dates: start: 2017
  3. ABILIFY MAINTENA [Suspect]
     Active Substance: ARIPIPRAZOLE
     Dosage: 500 MG
     Route: 065
  4. ZYPREXA [Suspect]
     Active Substance: OLANZAPINE
     Indication: Product used for unknown indication
     Dosage: UNK
     Route: 065
  5. INVEGA SUSTENNA [Suspect]
     Active Substance: PALIPERIDONE PALMITATE
     Indication: Product used for unknown indication
     Dosage: UNK
     Route: 065

REACTIONS (12)
  - Hallucination, auditory [Unknown]
  - Laryngitis [Unknown]
  - Communication disorder [Recovering/Resolving]
  - Eye discharge [Unknown]
  - Tendon disorder [Unknown]
  - Mastication disorder [Unknown]
  - Photopsia [Unknown]
  - Bruxism [Unknown]
  - Speech disorder [Unknown]
  - Agitation [Unknown]
  - Overdose [Unknown]
  - Product use in unapproved indication [Unknown]
